FAERS Safety Report 15545857 (Version 3)
Quarter: 2018Q4

REPORT INFORMATION
  Report Type: Report from Study
  Country: US (occurrence: US)
  Receive Date: 20181024
  Receipt Date: 20181101
  Transmission Date: 20190205
  Serious: No
  Sender: FDA-Public Use
  Company Number: US-SA-2018SA291970

PATIENT
  Age: 68 Year
  Sex: Male

DRUGS (1)
  1. ALIROCUMAB [Suspect]
     Active Substance: ALIROCUMAB
     Indication: BLOOD CHOLESTEROL
     Dosage: 75 MG, QOW
     Route: 058
     Dates: start: 20180919

REACTIONS (11)
  - Gait disturbance [Unknown]
  - Injection site bruising [Unknown]
  - Fatigue [Unknown]
  - Arthralgia [Unknown]
  - Nasopharyngitis [Unknown]
  - Asthenia [Unknown]
  - Feeling abnormal [Unknown]
  - Pain [Unknown]
  - Rhinorrhoea [Unknown]
  - Lethargy [Unknown]
  - Nasal congestion [Unknown]

NARRATIVE: CASE EVENT DATE: 20181019
